FAERS Safety Report 18717294 (Version 1)
Quarter: 2021Q1

REPORT INFORMATION
  Report Type: Spontaneous
  Country: US (occurrence: US)
  Receive Date: 20210108
  Receipt Date: 20210108
  Transmission Date: 20210419
  Serious: Yes (Other)
  Sender: FDA-Public Use
  Company Number: US-009507513-2101USA001308

PATIENT
  Sex: Female

DRUGS (13)
  1. FLONASE [Concomitant]
     Active Substance: FLUTICASONE PROPIONATE
     Dosage: DOSE 2 PUFFS PER NOSTRIL DAILY
  2. BONIVA [Suspect]
     Active Substance: IBANDRONATE SODIUM
     Indication: OSTEOPOROSIS
     Dosage: 150 MILLIGRAM
     Route: 048
  3. FORTEO [Suspect]
     Active Substance: TERIPARATIDE
     Indication: OSTEOPOROSIS
     Dosage: PRE?FILLED DISPOSABLE PEN
     Route: 065
     Dates: start: 2005, end: 2007
  4. FOSAMAX [Suspect]
     Active Substance: ALENDRONATE SODIUM
     Indication: OSTEOPOROSIS
     Dosage: 70 MILLIGRAM, UNKNOWN
     Route: 048
  5. ACTONEL [Suspect]
     Active Substance: RISEDRONATE SODIUM
     Indication: OSTEOPOROSIS
     Dosage: UNK
     Route: 065
  6. FISH OIL [Concomitant]
     Active Substance: FISH OIL
     Indication: GASTROOESOPHAGEAL REFLUX DISEASE
     Dosage: 870 MILLIGRAM
     Route: 048
  7. NIACIN. [Concomitant]
     Active Substance: NIACIN
     Dosage: UNK
  8. VITAMIN E [Concomitant]
     Active Substance: .ALPHA.-TOCOPHEROL
     Dosage: DOSE: 400 UNIT
     Route: 048
  9. ADVAIR HFA [Concomitant]
     Active Substance: FLUTICASONE PROPIONATE\SALMETEROL XINAFOATE
     Indication: ASTHMA
     Dosage: DRUG: ADVAIR DISKUS, DOSE: 250?50 MCG
  10. FORTEO [Concomitant]
     Active Substance: TERIPARATIDE
     Dosage: DOSE 2 PUFFS PER NOSTRIL DAILY
  11. FORTEO [Suspect]
     Active Substance: TERIPARATIDE
     Dosage: LOT NUMBER: A551498C
     Route: 065
     Dates: start: 20090507
  12. EVISTA [Suspect]
     Active Substance: RALOXIFENE HYDROCHLORIDE
     Indication: OSTEOPOROSIS
     Dosage: UNK
     Route: 048
  13. NEXIUM I.V. [Concomitant]
     Active Substance: ESOMEPRAZOLE SODIUM
     Indication: GASTROOESOPHAGEAL REFLUX DISEASE
     Dosage: 40 MILLIGRAM
     Route: 048

REACTIONS (10)
  - Aversion [Unknown]
  - Bone disorder [Unknown]
  - Lumbar spinal stenosis [Unknown]
  - Spinal osteoarthritis [Unknown]
  - Paraesthesia [Recovered/Resolved]
  - Medication error [Unknown]
  - Back pain [Unknown]
  - Intentional product use issue [Unknown]
  - Stress fracture [Not Recovered/Not Resolved]
  - Bursitis [Unknown]

NARRATIVE: CASE EVENT DATE: 2007
